FAERS Safety Report 8586453-6 (Version None)
Quarter: 2012Q3

REPORT INFORMATION
  Report Type: 
  Country: None (occurrence: None)
  Receive Date: 20120810
  Receipt Date: 20120801
  Transmission Date: 20120928
  Serious: Yes (Hospitalization)
  Sender: FDA-Public Use
  Company Number: FR-ASTRAZENECA-2012SE55094

PATIENT
  Age: 23210 Day
  Sex: Male

DRUGS (6)
  1. CANDESARTAN CILEXETIL AND HYDROCHLOROTHIAZIDE [Suspect]
     Dosage: 8/12.5 MG DAILY
     Route: 048
     Dates: end: 20120718
  2. ASPIRIN [Concomitant]
     Route: 048
  3. BARACLUDE [Concomitant]
     Route: 048
  4. ALDACTONE [Interacting]
     Route: 048
     Dates: end: 20120718
  5. PROPRANOLOL [Concomitant]
     Route: 048
  6. AMLODIPINE BESYLATE [Concomitant]
     Route: 048

REACTIONS (2)
  - RENAL FAILURE ACUTE [None]
  - DRUG INTERACTION [None]
